FAERS Safety Report 11396981 (Version 1)
Quarter: 2015Q3

REPORT INFORMATION
  Report Type: Other
  Country: FR (occurrence: FR)
  Receive Date: 20150819
  Receipt Date: 20150819
  Transmission Date: 20151125
  Serious: Yes (Death, Hospitalization)
  Sender: FDA-Public Use
  Company Number: FR-MYLANLABS-2015M1026747

PATIENT

DRUGS (12)
  1. HEXABRIX [Suspect]
     Active Substance: IOXAGLATE MEGLUMINE\IOXAGLATE SODIUM
     Indication: ARTERIOGRAM CORONARY
     Dosage: 42 ML, UNK
     Route: 042
     Dates: start: 20150515
  2. GENTAMICINE PANPHARMA [Suspect]
     Active Substance: GENTAMICIN
     Indication: BACTERIAL SEPSIS
     Dosage: 600 MG, UNK
     Route: 042
     Dates: start: 20150519, end: 20150519
  3. GENTAMICINE PANPHARMA [Suspect]
     Active Substance: GENTAMICIN
     Dosage: UNK MG, UNK
     Route: 042
     Dates: start: 20150601, end: 20150604
  4. PIPERACILLIN, TAZOBACTAM [Suspect]
     Active Substance: PIPERACILLIN SODIUM\TAZOBACTAM SODIUM
     Indication: BACTERIAL SEPSIS
     Dosage: UNK
     Route: 042
     Dates: start: 20150519, end: 20150523
  5. CORDARONE [Suspect]
     Active Substance: AMIODARONE HYDROCHLORIDE
     Dosage: 1500 MG, QD
     Route: 042
     Dates: start: 20150515, end: 20150515
  6. INEXIUM                            /01479302/ [Suspect]
     Active Substance: ESOMEPRAZOLE MAGNESIUM
     Indication: ULCER
     Dosage: UNK
     Route: 048
     Dates: start: 20150515, end: 20150714
  7. ZYVOXID [Suspect]
     Active Substance: LINEZOLID
     Indication: BACTERIAL SEPSIS
     Dosage: UNK
     Dates: start: 20150601, end: 20150604
  8. BACTRIM [Suspect]
     Active Substance: SULFAMETHOXAZOLE\TRIMETHOPRIM
     Indication: PROSTATITIS
     Dosage: UNK
     Route: 048
     Dates: start: 20150511, end: 20150512
  9. MEROPENEM MYLAN 1 G, POUDRE POUR SOLUTION INJECTABLE/POUR PERFUSION [Suspect]
     Active Substance: MEROPENEM
     Dosage: UNK
     Dates: start: 20150601, end: 20150604
  10. GENTAMICINE PANPHARMA [Suspect]
     Active Substance: GENTAMICIN
     Dosage: UNK MG, UNK
     Route: 042
     Dates: start: 20150526, end: 20150527
  11. MEROPENEM MYLAN 1 G, POUDRE POUR SOLUTION INJECTABLE/POUR PERFUSION [Suspect]
     Active Substance: MEROPENEM
     Indication: BACTERIAL SEPSIS
     Dosage: UNK
     Route: 042
     Dates: start: 20150526, end: 20150527
  12. CORDARONE [Suspect]
     Active Substance: AMIODARONE HYDROCHLORIDE
     Indication: ARRHYTHMIA
     Dosage: 300 MG, QD
     Route: 042
     Dates: start: 20150515, end: 20150515

REACTIONS (1)
  - Drug reaction with eosinophilia and systemic symptoms [Fatal]

NARRATIVE: CASE EVENT DATE: 20150604
